FAERS Safety Report 4623101-1 (Version None)
Quarter: 2005Q1

REPORT INFORMATION
  Report Type: 
  Country: None (occurrence: None)
  Receive Date: 20050328
  Receipt Date: 20050328
  Transmission Date: 20050727
  Serious: Yes (Hospitalization, Disabling, Other)
  Sender: FDA-Public Use
  Company Number: None

PATIENT
  Age: 72 Year
  Sex: Male
  Weight: 81.1939 kg

DRUGS (1)
  1. CIPRO [Suspect]
     Indication: PROSTATITIS
     Dosage: 500MG  2X A DAY ORAL
     Route: 048
     Dates: start: 20050101, end: 20050121

REACTIONS (6)
  - ANOREXIA [None]
  - ANXIETY [None]
  - BALANCE DISORDER [None]
  - INSOMNIA [None]
  - PANIC ATTACK [None]
  - WEIGHT DECREASED [None]
